FAERS Safety Report 13877534 (Version 1)
Quarter: 2017Q3

REPORT INFORMATION
  Report Type: Spontaneous
  Country: BR (occurrence: BR)
  Receive Date: 20170817
  Receipt Date: 20170817
  Transmission Date: 20171127
  Serious: Yes (Hospitalization)
  Sender: FDA-Public Use
  Company Number: BR-PFIZER INC-2017335770

PATIENT
  Age: 37 Year
  Sex: Female
  Weight: 75 kg

DRUGS (3)
  1. FLUOXETINE [Concomitant]
     Active Substance: FLUOXETINE HYDROCHLORIDE
     Dosage: 20 MG, DAILY
  2. LOSARTAN. [Concomitant]
     Active Substance: LOSARTAN
     Dosage: 50 MG, DAILY
  3. XELJANZ [Suspect]
     Active Substance: TOFACITINIB CITRATE
     Indication: RHEUMATOID ARTHRITIS
     Dosage: 5 MG, 2X/DAY (ONE UNIT OF 5MG EVERY 12 HOURS)
     Dates: start: 20170315, end: 20170713

REACTIONS (7)
  - Sinusitis [Unknown]
  - Cough [Unknown]
  - Infection [Unknown]
  - Urinary tract infection [Unknown]
  - Malaise [Unknown]
  - Pyrexia [Unknown]
  - Generalised oedema [Unknown]

NARRATIVE: CASE EVENT DATE: 2017
